FAERS Safety Report 16195173 (Version 1)
Quarter: 2019Q2

REPORT INFORMATION
  Report Type: Spontaneous
  Country: US (occurrence: US)
  Receive Date: 20190415
  Receipt Date: 20190415
  Transmission Date: 20190711
  Serious: No
  Sender: FDA-Public Use
  Company Number: US-TEVA-2019-US-1032741

PATIENT
  Sex: Female

DRUGS (2)
  1. DIOVAN HYDROCHLOROTHIAZIDE [Concomitant]
     Dosage: HYDROCHLOROTHIAZIDE 25 MG ; VALSARTAN 320 MG
  2. AMLODIPINE [Suspect]
     Active Substance: AMLODIPINE BESYLATE
     Route: 065

REACTIONS (2)
  - Dyspnoea [Unknown]
  - Peripheral swelling [Unknown]
